FAERS Safety Report 15111367 (Version 1)
Quarter: 2018Q3

REPORT INFORMATION
  Report Type: Spontaneous
  Country: AU (occurrence: AU)
  Receive Date: 20180705
  Receipt Date: 20180705
  Transmission Date: 20181010
  Serious: Yes (Hospitalization)
  Sender: FDA-Public Use
  Company Number: AU-GUERBET-AU-20180027

PATIENT
  Age: 68 Year
  Sex: Male
  Weight: 100 kg

DRUGS (1)
  1. OPTIRAY 350 [Suspect]
     Active Substance: IOVERSOL
     Indication: COMPUTERISED TOMOGRAM
     Route: 042
     Dates: start: 20180619, end: 20180619

REACTIONS (1)
  - Catatonia [Recovered/Resolved]

NARRATIVE: CASE EVENT DATE: 20180619
